FAERS Safety Report 16658419 (Version 2)
Quarter: 2019Q3

REPORT INFORMATION
  Report Type: Spontaneous
  Country: US (occurrence: US)
  Receive Date: 20190801
  Receipt Date: 20190830
  Transmission Date: 20191004
  Serious: Yes (Hospitalization, Other)
  Sender: FDA-Public Use
  Company Number: US-ASTRAZENECA-2019SF07005

PATIENT
  Age: 67 Year
  Sex: Female
  Weight: 63.5 kg

DRUGS (10)
  1. SEROQUEL [Suspect]
     Active Substance: QUETIAPINE FUMARATE
     Indication: SLEEP DISORDER
     Dosage: QUETIAPINE FUMARATE 100 MG TWO TIMES A DAY
     Route: 048
     Dates: start: 201806, end: 201810
  2. PERPHENAZINE. [Concomitant]
     Active Substance: PERPHENAZINE
     Indication: PSYCHOTIC DISORDER
     Dosage: 2.0MG AS REQUIRED
     Route: 048
  3. SEROQUEL [Suspect]
     Active Substance: QUETIAPINE FUMARATE
     Indication: SLEEP DISORDER
     Dosage: QUETIAPINE FUMARATE 25 MG AT NIGHT
     Route: 048
     Dates: start: 20180509, end: 201805
  4. SEROQUEL [Suspect]
     Active Substance: QUETIAPINE FUMARATE
     Indication: SLEEP DISORDER
     Route: 048
  5. HALDOL [Concomitant]
     Active Substance: HALOPERIDOL
     Indication: SCREAMING
     Dosage: AS REQUIRED
     Route: 030
     Dates: start: 201806
  6. PERPHENAZINE. [Concomitant]
     Active Substance: PERPHENAZINE
     Indication: PSYCHOTIC DISORDER
     Route: 048
  7. SOMETHING OTHER THAN LOSARTAN POTASSIUM [Concomitant]
     Indication: BLOOD PRESSURE ABNORMAL
  8. SEROQUEL [Suspect]
     Active Substance: QUETIAPINE FUMARATE
     Indication: SLEEP DISORDER
     Dosage: QUETIAPINE FUMARATE 50 MG AT NIGHT
     Route: 048
     Dates: start: 201805, end: 201806
  9. LIPITOR [Concomitant]
     Active Substance: ATORVASTATIN CALCIUM
     Indication: BLOOD CHOLESTEROL ABNORMAL
     Route: 048
     Dates: end: 2019
  10. LOSARTAN POTASSIUM. [Concomitant]
     Active Substance: LOSARTAN POTASSIUM
     Indication: BLOOD PRESSURE ABNORMAL
     Route: 048
     Dates: end: 2019

REACTIONS (11)
  - Mental disorder [Unknown]
  - Drug ineffective [Unknown]
  - Decreased appetite [Not Recovered/Not Resolved]
  - Hallucination, auditory [Unknown]
  - Suicidal ideation [Unknown]
  - Injury [Unknown]
  - Anger [Recovering/Resolving]
  - Body height decreased [Not Recovered/Not Resolved]
  - Infection [Unknown]
  - Weight decreased [Recovered/Resolved]
  - Sleep disorder [Unknown]

NARRATIVE: CASE EVENT DATE: 2018
